FAERS Safety Report 22154951 (Version 1)
Quarter: 2023Q1

REPORT INFORMATION
  Report Type: Spontaneous
  Country: US (occurrence: US)
  Receive Date: 20230330
  Receipt Date: 20230330
  Transmission Date: 20230417
  Serious: No
  Sender: FDA-Public Use
  Company Number: US-GSK-US2023AMR044358

PATIENT
  Sex: Female

DRUGS (1)
  1. NUCALA [Suspect]
     Active Substance: MEPOLIZUMAB
     Indication: Product used for unknown indication
     Dosage: UNK
     Dates: start: 20230322

REACTIONS (5)
  - Ocular hyperaemia [Unknown]
  - Conjunctivitis [Unknown]
  - Eye pruritus [Unknown]
  - Eye discharge [Unknown]
  - Fatigue [Unknown]
